FAERS Safety Report 7623882 (Version 3)
Quarter: 2014Q1

REPORT INFORMATION
  Report Type: Spontaneous
  Country: US (occurrence: US)
  Receive Date: 20101011
  Receipt Date: 20140124
  Transmission Date: 20141002
  Serious: Yes (Other)
  Sender: FDA-Public Use
  Company Number: US-BAYER-201036178NA

PATIENT
  Age: 18 Year
  Sex: Female
  Weight: 47.62 kg

DRUGS (4)
  1. YASMIN [Suspect]
     Indication: CONTRACEPTION
     Dosage: UNK
     Route: 048
     Dates: start: 20030311, end: 20041228
  2. YASMIN [Suspect]
     Indication: CONTRACEPTION
     Dosage: UNK
     Dates: start: 2003, end: 2006
  3. PROTONIX [Concomitant]
     Dosage: 40 MG, UNK
  4. ZYRTEC [Concomitant]
     Indication: HYPERSENSITIVITY
     Dosage: UNK
     Dates: start: 2003

REACTIONS (4)
  - Gallbladder disorder [Unknown]
  - Dyspepsia [None]
  - Procedural pain [None]
  - Cholecystitis chronic [None]
